FAERS Safety Report 6618771-2 (Version None)
Quarter: 2010Q1

REPORT INFORMATION
  Report Type: 
  Country: None (occurrence: None)
  Receive Date: 20100308
  Receipt Date: 20100225
  Transmission Date: 20100710
  Serious: Yes (Hospitalization)
  Sender: FDA-Public Use
  Company Number: US-BRISTOL-MYERS SQUIBB COMPANY-14993471

PATIENT
  Age: 61 Year
  Sex: Female
  Weight: 60 kg

DRUGS (5)
  1. CYTOXAN [Suspect]
     Indication: BREAST CANCER
     Route: 042
     Dates: start: 20100203
  2. AVASTIN [Suspect]
     Indication: BREAST CANCER
     Route: 042
     Dates: start: 20100203
  3. ADRIAMYCIN PFS [Suspect]
     Indication: BREAST CANCER
     Route: 042
     Dates: start: 20100203
  4. ABRAXANE [Suspect]
     Indication: BREAST CANCER
     Dates: end: 20100112
  5. NEULASTA [Concomitant]
     Route: 058
     Dates: start: 20100204

REACTIONS (9)
  - ANAEMIA [None]
  - DECREASED APPETITE [None]
  - DEHYDRATION [None]
  - EPISTAXIS [None]
  - FATIGUE [None]
  - FEBRILE NEUTROPENIA [None]
  - NAUSEA [None]
  - PYREXIA [None]
  - SINUSITIS [None]
